FAERS Safety Report 5195038-3 (Version None)
Quarter: 2006Q4

REPORT INFORMATION
  Report Type: 
  Country: None (occurrence: None)
  Receive Date: 20061229
  Receipt Date: 20061222
  Transmission Date: 20070319
  Serious: Yes (Death)
  Sender: FDA-Public Use
  Company Number: US-BRISTOL-MYERS SQUIBB COMPANY-13623418

PATIENT
  Age: 15 Year
  Sex: Male

DRUGS (2)
  1. ABILIFY [Suspect]
     Route: 048
     Dates: start: 20060101
  2. SEROQUEL [Concomitant]

REACTIONS (1)
  - SUDDEN DEATH [None]
